FAERS Safety Report 4890454-9 (Version None)
Quarter: 2005Q4

REPORT INFORMATION
  Report Type: 
  Country: None (occurrence: None)
  Receive Date: 20051216
  Receipt Date: 20051010
  Transmission Date: 20060501
  Serious: No
  Sender: FDA-Public Use
  Company Number: BDI-007618

PATIENT
  Age: 57 Year
  Sex: Female
  Weight: 90 kg

DRUGS (2)
  1. MULTIHANCE [Suspect]
     Indication: HEPATIC LESION
     Dosage: 20 ML ONCE IV
     Route: 042
     Dates: start: 20051010, end: 20051010
  2. MULTIHANCE [Suspect]
     Indication: NUCLEAR MAGNETIC RESONANCE IMAGING
     Dosage: 20 ML ONCE IV
     Route: 042
     Dates: start: 20051010, end: 20051010

REACTIONS (2)
  - FEELING HOT [None]
  - URTICARIA [None]
